FAERS Safety Report 21916325 (Version 3)
Quarter: 2023Q1

REPORT INFORMATION
  Report Type: Report from Study
  Country: US (occurrence: US)
  Receive Date: 20230126
  Receipt Date: 20230210
  Transmission Date: 20230417
  Serious: Yes (Other)
  Sender: FDA-Public Use
  Company Number: US-002147023-NVSC2022US165209

PATIENT
  Age: 50 Year
  Sex: Male
  Weight: 75.6 kg

DRUGS (19)
  1. PLUVICTO [Suspect]
     Active Substance: LUTETIUM LU-177 VIPIVOTIDE TETRAXETAN
     Indication: Hormone-dependent prostate cancer
     Dosage: 200 MCI, ONCE/SINGLE
     Route: 042
     Dates: start: 20220316
  2. LOCAMETZ [Suspect]
     Active Substance: PSMA-HBED-CC
     Indication: Hormone-dependent prostate cancer
     Dosage: 4.8 MCI, ONCE/SINGLE
     Route: 042
     Dates: start: 20220222
  3. ALPROSTADIL [Concomitant]
     Active Substance: ALPROSTADIL
     Indication: Erectile dysfunction
     Dosage: PHENTOLAMINE MESYLATE 0.5 MG; ALPROSTADIL 10 MCG; PAPAVERINE HCL 30 MG
     Route: 065
     Dates: start: 20220426
  4. VITAMIN D3 [Concomitant]
     Active Substance: CHOLECALCIFEROL
     Indication: General physical condition
     Dosage: UNK
     Route: 065
     Dates: start: 2018
  5. IBUPROFEN [Concomitant]
     Active Substance: IBUPROFEN
     Indication: Toothache
     Dosage: UNK
     Route: 065
     Dates: start: 20220711
  6. IBUPROFEN [Concomitant]
     Active Substance: IBUPROFEN
     Indication: Tooth abscess
  7. PENICILLIN V POTASSIUM [Concomitant]
     Active Substance: PENICILLIN V POTASSIUM
     Indication: Toothache
     Dosage: UNK
     Route: 065
     Dates: start: 20220711
  8. PENICILLIN V POTASSIUM [Concomitant]
     Active Substance: PENICILLIN V POTASSIUM
     Indication: Tooth abscess
  9. CALCIUM\MAGNESIUM\VITAMIN D\ZINC [Concomitant]
     Active Substance: CALCIUM\MAGNESIUM\VITAMIN D\ZINC
     Indication: General physical condition
     Dosage: UNK
     Route: 065
     Dates: start: 20220208
  10. VITAMIN C [Concomitant]
     Active Substance: ASCORBIC ACID
     Indication: General physical condition
     Dosage: UNK
     Route: 065
     Dates: start: 2020
  11. ZINC [Concomitant]
     Active Substance: ZINC
     Indication: General physical condition
     Dosage: UNK
     Route: 065
     Dates: start: 202201
  12. TADALAFIL [Concomitant]
     Active Substance: TADALAFIL
     Indication: Erectile dysfunction
     Dosage: UNK
     Route: 065
     Dates: start: 202201
  13. ATORVASTATIN CALCIUM [Concomitant]
     Active Substance: ATORVASTATIN CALCIUM
     Indication: Blood cholesterol increased
     Dosage: UNK
     Route: 065
     Dates: start: 202103
  14. LISINOPRIL [Concomitant]
     Active Substance: LISINOPRIL
     Indication: Hypertension
     Dosage: UNK
     Route: 065
     Dates: start: 202012
  15. PREDNISONE [Concomitant]
     Active Substance: PREDNISONE
     Indication: Prostate cancer metastatic
     Dosage: UNK
     Route: 065
     Dates: start: 20220309
  16. LEUPROLIDE [Concomitant]
     Active Substance: LEUPROLIDE
     Indication: Product used for unknown indication
     Dosage: 45 MG, EVERY 24 WEEKS
     Route: 065
     Dates: start: 20220302
  17. ABIRATERONE [Concomitant]
     Active Substance: ABIRATERONE
     Indication: Product used for unknown indication
     Dosage: 1000 MG_ONCE
     Route: 065
     Dates: start: 20220316
  18. TYLENOL [Concomitant]
     Active Substance: ACETAMINOPHEN
     Indication: Toothache
     Dosage: UNK
     Route: 065
     Dates: start: 20220711
  19. TYLENOL [Concomitant]
     Active Substance: ACETAMINOPHEN
     Indication: Tooth abscess

REACTIONS (1)
  - Infusion site extravasation [Recovered/Resolved]

NARRATIVE: CASE EVENT DATE: 20220719
